FAERS Safety Report 4964560-4 (Version None)
Quarter: 2006Q2

REPORT INFORMATION
  Report Type: 
  Country: None (occurrence: None)
  Receive Date: 20060406
  Receipt Date: 20060327
  Transmission Date: 20061013
  Serious: Yes (Other)
  Sender: FDA-Public Use
  Company Number: BE-GLAXOSMITHKLINE-B0419049A

PATIENT
  Sex: Male

DRUGS (3)
  1. SEROXAT [Suspect]
     Route: 065
  2. MALARONE [Suspect]
     Indication: PROPHYLAXIS
     Route: 065
  3. TEGRETOL [Concomitant]
     Route: 065

REACTIONS (2)
  - INFERTILITY MALE [None]
  - SPERMATOZOA ABNORMAL [None]
